FAERS Safety Report 7749802-4 (Version None)
Quarter: 2011Q3

REPORT INFORMATION
  Report Type: 
  Country: None (occurrence: None)
  Receive Date: 20110914
  Receipt Date: 20110909
  Transmission Date: 20111222
  Serious: No
  Sender: FDA-Public Use
  Company Number: US-PFIZER INC-2011212720

PATIENT

DRUGS (1)
  1. XANAX [Suspect]
     Dosage: UNK

REACTIONS (5)
  - DIZZINESS [None]
  - COUGH [None]
  - PAIN IN JAW [None]
  - THROAT IRRITATION [None]
  - FATIGUE [None]
